FAERS Safety Report 10232977 (Version 1)
Quarter: 2014Q2

REPORT INFORMATION
  Report Type: Spontaneous
  Country: US (occurrence: US)
  Receive Date: 20140612
  Receipt Date: 20140612
  Transmission Date: 20141212
  Serious: No
  Sender: FDA-Public Use
  Company Number: US-009507513-1406USA000748

PATIENT
  Age: 25 Year
  Sex: Female
  Weight: 78.5 kg

DRUGS (2)
  1. NUVARING [Suspect]
     Indication: CONTRACEPTION
     Dosage: 3 WEEKS IN 1 WEEK OUT
     Route: 067
     Dates: start: 20140511
  2. ADDERALL TABLETS [Concomitant]
     Dosage: UNK

REACTIONS (1)
  - Metrorrhagia [Unknown]
